FAERS Safety Report 10238923 (Version 2)
Quarter: 2014Q2

REPORT INFORMATION
  Report Type: Spontaneous
  Country: CH (occurrence: None)
  Receive Date: 20140612
  Receipt Date: 20140624
  Transmission Date: 20141212
  Serious: Yes (Death, Hospitalization, Other)
  Sender: FDA-Public Use
  Company Number: 20140328

PATIENT
  Sex: Male

DRUGS (12)
  1. FERINJECT [Suspect]
     Indication: PRODUCT USED FOR UNKNOWN INDICATION
     Route: 042
     Dates: start: 20130515
  2. VENOFER [Suspect]
     Indication: PRODUCT USED FOR UNKNOWN INDICATION
     Dates: start: 20130415
  3. ASPEGIC [Concomitant]
  4. D-CURE [Concomitant]
  5. ELITHYRONE [Concomitant]
  6. EMCONCOR (BISOPROLOL FUMARATE) [Concomitant]
  7. GLUCOPHAGE [Concomitant]
  8. HEPARIN [Concomitant]
  9. LASIX (FUROSEMIDE) [Concomitant]
  10. UNIDIAMICRON [Concomitant]
  11. ZESTRIL [Concomitant]
  12. ERGOCALCIFEROL/VITAMIN D, UNKNOWN [Concomitant]

REACTIONS (25)
  - Malaise [None]
  - Cerebrovascular accident [None]
  - Type IV hypersensitivity reaction [None]
  - Sudden death [None]
  - VIIth nerve paralysis [None]
  - Bedridden [None]
  - Oropharyngeal pain [None]
  - Night sweats [None]
  - Dysphonia [None]
  - Pain in extremity [None]
  - Pain [None]
  - Muscle spasms [None]
  - Myocardial infarction [None]
  - Diastolic dysfunction [None]
  - Aortic valve sclerosis [None]
  - Hypercalcaemia [None]
  - Plasma cell myeloma [None]
  - Fall [None]
  - Cystitis [None]
  - Diarrhoea haemorrhagic [None]
  - Clostridium colitis [None]
  - Oedema peripheral [None]
  - Secondary immunodeficiency [None]
  - Urinary incontinence [None]
  - Pyrexia [None]
